FAERS Safety Report 6931356-3 (Version None)
Quarter: 2010Q3

REPORT INFORMATION
  Report Type: 
  Country: None (occurrence: None)
  Receive Date: 20100816
  Receipt Date: 20100809
  Transmission Date: 20110219
  Serious: Yes (Hospitalization)
  Sender: FDA-Public Use
  Company Number: 016076

PATIENT
  Sex: Male

DRUGS (6)
  1. KEPPRA [Suspect]
     Indication: EPILEPSY
     Dosage: (1500 MG, 500 MG FILM COATED TABLETS-60 FILM COATED TABLETS ORAL)
     Route: 048
     Dates: start: 20100601, end: 20100714
  2. DEPAKIN (DEPAKIN-CHRONO) [Suspect]
     Indication: EPILEPSY
     Dosage: (1500 MG, 500 MG PROLONGED RELEASE TABLETS-30 TABLETS ORAL)
     Route: 048
     Dates: start: 20100526, end: 20100624
  3. CARDIOASPIRIN (CARDIOASPIRIN) [Suspect]
     Indication: THROMBOSIS PROPHYLAXIS
     Dosage: (100 MG, 100 MG GASTRORESISTANT TABLETS-30 MG TABLETS ORAL)
     Route: 048
     Dates: start: 20100601, end: 20100714
  4. NIMODIPINE [Concomitant]
  5. FRISIUM [Concomitant]
  6. PANTORC [Concomitant]

REACTIONS (1)
  - THROMBOCYTOPENIA [None]
